FAERS Safety Report 9267359 (Version 1)
Quarter: 2013Q2

REPORT INFORMATION
  Report Type: Spontaneous
  Country: US (occurrence: US)
  Receive Date: 20130502
  Receipt Date: 20130502
  Transmission Date: 20140414
  Serious: Yes (Other)
  Sender: FDA-Public Use
  Company Number: US-PFIZER INC-2013133358

PATIENT
  Sex: Female
  Weight: 51 kg

DRUGS (3)
  1. ATROPINE SULFATE/DIPHENOXYLATE HYDROCHLORIDE [Suspect]
     Indication: DIARRHOEA
     Dosage: UNK
     Route: 048
     Dates: end: 201304
  2. COREG [Concomitant]
     Indication: HYPERTENSION
     Dosage: UNK, TWO TIMES A DAY
  3. LISINOPRIL [Concomitant]
     Indication: HYPERTENSION
     Dosage: 2 MG, 1X/DAY

REACTIONS (3)
  - Cardiac failure congestive [Unknown]
  - Feeling abnormal [Unknown]
  - Drug ineffective [Unknown]
